FAERS Safety Report 18464282 (Version 4)
Quarter: 2023Q4

REPORT INFORMATION
  Report Type: Spontaneous
  Country: JP (occurrence: JP)
  Receive Date: 20201104
  Receipt Date: 20231113
  Transmission Date: 20240110
  Serious: Yes (Death, Life-Threatening, Other)
  Sender: FDA-Public Use
  Company Number: JP-JAZZ-2020-JP-013437

PATIENT
  Age: 62 Year
  Sex: Male
  Weight: 84.5 kg

DRUGS (1)
  1. DEFITELIO [Suspect]
     Active Substance: DEFIBROTIDE SODIUM
     Indication: Venoocclusive liver disease
     Dosage: 25 MILLIGRAM/KILOGRAM, QD
     Route: 042
     Dates: start: 20200903, end: 20200923

REACTIONS (7)
  - Septic shock [Fatal]
  - Liver disorder [Fatal]
  - Hypotension [Not Recovered/Not Resolved]
  - Renal failure [Unknown]
  - Upper gastrointestinal haemorrhage [Recovered/Resolved]
  - Gastric ulcer haemorrhage [Recovered/Resolved]
  - Haematuria [Recovered/Resolved]

NARRATIVE: CASE EVENT DATE: 20200101
